FAERS Safety Report 4627982-7 (Version None)
Quarter: 2005Q2

REPORT INFORMATION
  Report Type: 
  Country: None (occurrence: None)
  Receive Date: 20050406
  Receipt Date: 20020620
  Transmission Date: 20051028
  Serious: Yes (Life-Threatening, Hospitalization, Other)
  Sender: FDA-Public Use
  Company Number: PHBS2002JP07374

PATIENT
  Age: 44 Year
  Sex: Female
  Weight: 65 kg

DRUGS (7)
  1. SULFADOXINE [Suspect]
     Dosage: 500 MG/D
     Route: 042
  2. PYRIMETHAMINE [Suspect]
     Dosage: 25 MG/D
     Route: 048
  3. PYRIMETHAMINE [Suspect]
     Dosage: 25 MG/D
     Route: 048
  4. CLINDAMYCIN [Suspect]
     Dosage: 1600 MG/D
     Route: 042
  5. NEORAL [Suspect]
     Indication: BEHCET'S SYNDROME
     Dosage: 350 MG/DAY
     Route: 048
     Dates: start: 20010801, end: 20020430
  6. SANDIMMUNE [Concomitant]
     Dosage: 250 MG/D
     Route: 048
     Dates: start: 19941101, end: 20010801
  7. PREDONINE [Concomitant]
     Dates: start: 19940101, end: 20010801

REACTIONS (14)
  - ANAEMIA [None]
  - BONE MARROW DEPRESSION [None]
  - BRAIN OEDEMA [None]
  - CEREBRAL TOXOPLASMOSIS [None]
  - DEPRESSED LEVEL OF CONSCIOUSNESS [None]
  - DRUG ERUPTION [None]
  - EXANTHEM [None]
  - HEADACHE [None]
  - HEMIPLEGIA [None]
  - LOSS OF CONSCIOUSNESS [None]
  - LYMPHOCYTE COUNT DECREASED [None]
  - NAUSEA [None]
  - PLATELET COUNT DECREASED [None]
  - VOMITING [None]
